FAERS Safety Report 7268490-7 (Version None)
Quarter: 2011Q1

REPORT INFORMATION
  Report Type: 
  Country: None (occurrence: None)
  Receive Date: 20110201
  Receipt Date: 20110128
  Transmission Date: 20110831
  Serious: Yes (Death)
  Sender: FDA-Public Use
  Company Number: KR-EISAI INC-E2020-08447-SPO-KR

PATIENT
  Age: 70 Year
  Sex: Female

DRUGS (2)
  1. CLOPIDOGREL [Concomitant]
     Indication: CAROTID ARTERY STENOSIS
     Dosage: 75 MG UNKNOWN
     Route: 048
     Dates: start: 20101103
  2. ARICEPT [Suspect]
     Route: 048
     Dates: start: 20101103

REACTIONS (1)
  - GALLBLADDER CANCER [None]
